FAERS Safety Report 5017007-6 (Version None)
Quarter: 2006Q2

REPORT INFORMATION
  Report Type: 
  Country: None (occurrence: None)
  Receive Date: 20060525
  Receipt Date: 20060427
  Transmission Date: 20061013
  Serious: Yes (Life-Threatening)
  Sender: FDA-Public Use
  Company Number: 2006-142902-NL

PATIENT
  Age: 43 Year
  Sex: Male

DRUGS (16)
  1. DANAPAROID SODIUM [Suspect]
     Indication: DISSEMINATED INTRAVASCULAR COAGULATION
     Route: 042
     Dates: start: 20060308, end: 20060311
  2. DANAPAROID SODIUM [Suspect]
     Indication: DISSEMINATED INTRAVASCULAR COAGULATION
     Route: 042
     Dates: start: 20060312, end: 20060312
  3. PLASMA PROTEIN FRACTION (HUMAN) [Concomitant]
  4. TRANEXAMIC ACID [Concomitant]
  5. ETOPOSIDE [Concomitant]
  6. NOVANTRONE [Concomitant]
  7. ISEPAMICIN SULFATE [Concomitant]
  8. CEFTAZIDIME [Concomitant]
  9. ALLOPURINOL [Concomitant]
  10. FLUCONAZOLE [Concomitant]
  11. CEFCAPENE PIVOXIL HYDROCHLORIDE [Concomitant]
  12. ZOLPIDEM TARTRATE [Concomitant]
  13. RAMOSETRON HYDROCHLORIDE [Concomitant]
  14. PLATELETS [Concomitant]
  15. DEXCHLORPHENIRAMINE MALEATE [Concomitant]
  16. STREPTOCOCCUS FAECALIS [Concomitant]

REACTIONS (9)
  - ACTIVATED PARTIAL THROMBOPLASTIN TIME PROLONGED [None]
  - BACTERAEMIA [None]
  - ENTEROCOLITIS [None]
  - FEBRILE NEUTROPENIA [None]
  - FIBRIN DEGRADATION PRODUCTS INCREASED [None]
  - PLATELET COUNT DECREASED [None]
  - PROTHROMBIN TIME PROLONGED [None]
  - RED BLOOD CELL COUNT DECREASED [None]
  - WHITE BLOOD CELL COUNT DECREASED [None]
